FAERS Safety Report 9036285 (Version 1)
Quarter: 2013Q1

REPORT INFORMATION
  Report Type: Report from Study
  Country: US (occurrence: US)
  Receive Date: 20130129
  Receipt Date: 20130129
  Transmission Date: 20140127
  Serious: No
  Sender: FDA-Public Use
  Company Number: US-ABBOTT-12P-163-0897301-00

PATIENT
  Age: 58 None
  Sex: Female
  Weight: 127.12 kg

DRUGS (8)
  1. HUMIRA 40 MG/0.8 ML PEN [Suspect]
     Indication: RHEUMATOID ARTHRITIS
     Dates: start: 201108, end: 201112
  2. HUMIRA 40 MG/0.8 ML PEN [Suspect]
     Dates: start: 20120119
  3. NOVOLOG PEN [Concomitant]
     Indication: DIABETES MELLITUS
  4. LANTUS [Concomitant]
     Indication: DIABETES MELLITUS
  5. MAVIK [Concomitant]
     Indication: HYPERTENSION
  6. FUROSEMIDE [Concomitant]
     Indication: SWELLING
  7. FUROSEMIDE [Concomitant]
     Indication: CARDIAC FAILURE CONGESTIVE
  8. METHOTREXATE [Concomitant]
     Indication: RHEUMATOID ARTHRITIS
     Dates: end: 20120107

REACTIONS (3)
  - Cellulitis [Recovered/Resolved]
  - Drug tolerance [Not Recovered/Not Resolved]
  - Rheumatoid arthritis [Not Recovered/Not Resolved]
